FAERS Safety Report 5464978-X (Version None)
Quarter: 2007Q3

REPORT INFORMATION
  Report Type: 
  Country: None (occurrence: None)
  Receive Date: 20070921
  Receipt Date: 20070914
  Transmission Date: 20080115
  Serious: Yes (Other)
  Sender: FDA-Public Use
  Company Number: US-PFIZER INC-2007077842

PATIENT
  Age: 46 Year
  Sex: Male
  Weight: 79.8 kg

DRUGS (2)
  1. NICOTROL [Suspect]
     Indication: SMOKING CESSATION THERAPY
     Route: 055
  2. HABITROL [Suspect]
     Indication: SMOKING CESSATION THERAPY
     Dosage: DAILY DOSE:42MG
     Route: 062

REACTIONS (3)
  - ANOREXIA [None]
  - BLOOD PRESSURE INCREASED [None]
  - OVERDOSE [None]
